FAERS Safety Report 4578779-8 (Version None)
Quarter: 2005Q1

REPORT INFORMATION
  Report Type: 
  Country: None (occurrence: None)
  Receive Date: 20050207
  Receipt Date: 20050207
  Transmission Date: 20050727
  Serious: Yes (Hospitalization)
  Sender: FDA-Public Use
  Company Number: None

PATIENT
  Age: 68 Year
  Sex: Male

DRUGS (6)
  1. UROXATRAL [Suspect]
     Indication: BENIGN PROSTATIC HYPERPLASIA
     Dates: start: 20041029, end: 20041029
  2. AMARYL [Concomitant]
  3. DIOVAN [Concomitant]
  4. DILTIAZEM CD [Concomitant]
  5. PROSCAR [Concomitant]
  6. BACTRIM [Concomitant]

REACTIONS (2)
  - DIZZINESS [None]
  - SYNCOPE [None]
